FAERS Safety Report 26052931 (Version 1)
Quarter: 2025Q4

REPORT INFORMATION
  Report Type: Spontaneous
  Country: US (occurrence: US)
  Receive Date: 20251117
  Receipt Date: 20251117
  Transmission Date: 20260118
  Serious: No
  Sender: MAYNE
  Company Number: US-MAYNE PHARMA-2025MYN000056

PATIENT
  Sex: Female

DRUGS (2)
  1. BIJUVA [Suspect]
     Active Substance: ESTRADIOL\PROGESTERONE
     Indication: Menopause
     Dosage: 1/100 MILLIGRAM
     Route: 065
  2. BIJUVA [Suspect]
     Active Substance: ESTRADIOL\PROGESTERONE
     Indication: Intermenstrual bleeding
     Dosage: 0.5 (UNITS NOT SPECIFIED)
     Route: 065

REACTIONS (2)
  - Intermenstrual bleeding [Unknown]
  - Panic attack [Unknown]

NARRATIVE: CASE EVENT DATE: 20240101
